FAERS Safety Report 12437468 (Version 1)
Quarter: 2016Q2

REPORT INFORMATION
  Report Type: Spontaneous
  Country: US (occurrence: None)
  Receive Date: 20160603
  Receipt Date: 20160603
  Transmission Date: 20160815
  Serious: Yes (Hospitalization)
  Sender: FDA-Public Use
  Company Number: None

PATIENT
  Age: 20 Year
  Sex: Male
  Weight: 92.53 kg

DRUGS (7)
  1. SUBOXONE [Suspect]
     Active Substance: BUPRENORPHINE HYDROCHLORIDE\NALOXONE HYDROCHLORIDE
     Indication: DRUG DEPENDENCE
     Route: 060
     Dates: start: 20090101, end: 20090101
  2. VITAMIN C [Concomitant]
     Active Substance: ASCORBIC ACID
  3. XANNAX [Concomitant]
  4. IBUPROFEN. [Concomitant]
     Active Substance: IBUPROFEN
  5. NEUROTINS [Concomitant]
  6. MULTIVITAMIN [Concomitant]
     Active Substance: VITAMINS
  7. SUBUTEX [Concomitant]
     Active Substance: BUPRENORPHINE HYDROCHLORIDE

REACTIONS (11)
  - Fatigue [None]
  - Photophobia [None]
  - Malaise [None]
  - Diarrhoea [None]
  - Loss of consciousness [None]
  - Drug withdrawal syndrome [None]
  - Erythema [None]
  - Dyspnoea [None]
  - Dehydration [None]
  - Abdominal pain upper [None]
  - Feeling hot [None]

NARRATIVE: CASE EVENT DATE: 20090101
